FAERS Safety Report 20357442 (Version 3)
Quarter: 2022Q2

REPORT INFORMATION
  Report Type: Spontaneous
  Country: US (occurrence: US)
  Receive Date: 20220120
  Receipt Date: 20220526
  Transmission Date: 20220721
  Serious: No
  Sender: FDA-Public Use
  Company Number: US-PFIZER INC-2020415950

PATIENT
  Age: 66 Year
  Sex: Female

DRUGS (1)
  1. IBRANCE [Suspect]
     Active Substance: PALBOCICLIB
     Indication: Metastases to bone
     Dosage: 125 MG, CYCLIC ( ONCE DAILY WITH OR WITHOUT FOOD FOR 14 DAYS FOLLOWED BY 7 DAYS OFF)
     Route: 048

REACTIONS (2)
  - Pain [Not Recovered/Not Resolved]
  - Alopecia [Unknown]
